FAERS Safety Report 4602195-3 (Version None)
Quarter: 2005Q2

REPORT INFORMATION
  Report Type: 
  Country: None (occurrence: None)
  Receive Date: 20050215
  Receipt Date: 20041101
  Transmission Date: 20051028
  Serious: Yes (Hospitalization)
  Sender: FDA-Public Use
  Company Number: MC200400699

PATIENT
  Age: 79 Year
  Sex: Female

DRUGS (2)
  1. ANGIOMAX [Suspect]
     Indication: CORONARY ANGIOPLASTY
     Dosage: 0.75 MG/KG, BOLUS, IV BOLUS
     Route: 041
  2. ANGIOMAX [Suspect]
     Dosage: 1.75 MG/KG

REACTIONS (2)
  - HAEMORRHAGE [None]
  - VASCULAR PSEUDOANEURYSM [None]
